FAERS Safety Report 11937016 (Version 2)
Quarter: 2016Q2

REPORT INFORMATION
  Report Type: Spontaneous
  Country: US (occurrence: US)
  Receive Date: 20160121
  Receipt Date: 20160516
  Transmission Date: 20160815
  Serious: Yes (Other)
  Sender: FDA-Public Use
  Company Number: US-BAYER-2016-011617

PATIENT
  Age: 35 Year
  Sex: Female
  Weight: 72.11 kg

DRUGS (1)
  1. MIRENA [Suspect]
     Active Substance: LEVONORGESTREL
     Indication: CONTRACEPTION
     Dosage: UNK
     Route: 015
     Dates: start: 20100809, end: 20160119

REACTIONS (7)
  - Procedural pain [None]
  - Medical device monitoring error [None]
  - Embedded device [Recovered/Resolved]
  - Device breakage [Recovered/Resolved]
  - Complication of device removal [Recovered/Resolved]
  - Device difficult to use [Recovered/Resolved]
  - Device use issue [None]

NARRATIVE: CASE EVENT DATE: 20100809
